FAERS Safety Report 18083745 (Version 4)
Quarter: 2020Q3

REPORT INFORMATION
  Report Type: Spontaneous
  Country: BR (occurrence: BR)
  Receive Date: 20200729
  Receipt Date: 20200812
  Transmission Date: 20201103
  Serious: Yes (Hospitalization, Other)
  Sender: FDA-Public Use
  Company Number: BR-SA-2020SA189257

PATIENT

DRUGS (3)
  1. LANTUS [Suspect]
     Active Substance: INSULIN GLARGINE
     Dosage: UNK
     Route: 065
     Dates: start: 2005
  2. GALVUS [Concomitant]
     Active Substance: VILDAGLIPTIN
     Indication: DIABETES MELLITUS MANAGEMENT
     Dosage: 1 TABLE T OF 50 MG DAILY
     Route: 048
  3. LANTUS [Suspect]
     Active Substance: INSULIN GLARGINE
     Indication: DIABETIC NEUROPATHY
     Dosage: 35UI IN THE MORNING AND10UI AT NIGHT
     Route: 058
     Dates: start: 202004

REACTIONS (10)
  - Chronic kidney disease [Unknown]
  - Cardiac disorder [Unknown]
  - Dyspnoea [Unknown]
  - Blood glucose increased [Recovering/Resolving]
  - Coma [Unknown]
  - Multiple use of single-use product [Unknown]
  - Wrong technique in device usage process [Unknown]
  - Device issue [Recovering/Resolving]
  - Product storage error [Unknown]
  - Inappropriate schedule of product administration [Unknown]

NARRATIVE: CASE EVENT DATE: 2005
